FAERS Safety Report 17080819 (Version 1)
Quarter: 2019Q4

REPORT INFORMATION
  Report Type: Spontaneous
  Country: US (occurrence: US)
  Receive Date: 20191127
  Receipt Date: 20191127
  Transmission Date: 20200122
  Serious: No
  Sender: FDA-Public Use
  Company Number: US-MYLANLABS-2019M1110571

PATIENT
  Sex: Female
  Weight: 77 kg

DRUGS (1)
  1. ALPRAZOLAM TABLETS, USP [Suspect]
     Active Substance: ALPRAZOLAM
     Indication: ANXIETY
     Dosage: UP TO TWICE DAILY AS NEEDED
     Route: 048

REACTIONS (8)
  - Vomiting [Recovered/Resolved]
  - Nausea [Unknown]
  - Feeding disorder [Recovered/Resolved]
  - Gastric disorder [Recovering/Resolving]
  - Recalled product administered [Unknown]
  - Weight decreased [Unknown]
  - Hyperhidrosis [Recovered/Resolved]
  - Malaise [Unknown]
